FAERS Safety Report 9216319 (Version 1)
Quarter: 2013Q2

REPORT INFORMATION
  Report Type: Spontaneous
  Country: MT (occurrence: MT)
  Receive Date: 20130408
  Receipt Date: 20130408
  Transmission Date: 20140414
  Serious: Yes (Hospitalization, Other)
  Sender: FDA-Public Use
  Company Number: PHHY2013MT032263

PATIENT
  Age: 52 Year
  Sex: Male

DRUGS (2)
  1. CICLOSPORIN [Suspect]
  2. AZATHIOPRINE [Suspect]

REACTIONS (2)
  - Basosquamous carcinoma of skin [Recovering/Resolving]
  - Pancytopenia [Unknown]
